FAERS Safety Report 8522472-3 (Version None)
Quarter: 2012Q3

REPORT INFORMATION
  Report Type: 
  Country: None (occurrence: None)
  Receive Date: 20120719
  Receipt Date: 20120710
  Transmission Date: 20120928
  Serious: Yes (Hospitalization)
  Sender: FDA-Public Use
  Company Number: DK-ELI_LILLY_AND_COMPANY-DK201205001227

PATIENT
  Sex: Female
  Weight: 56 kg

DRUGS (15)
  1. ASPIRIN [Concomitant]
     Dosage: UNK, LOADING DOSE
  2. FORMOTEROL FUMARATE [Concomitant]
  3. PANTOPRAZOLE SODIUM [Concomitant]
  4. BRICANYL [Concomitant]
  5. PRASUGREL HYDROCHLORIDE [Suspect]
     Indication: ACUTE CORONARY SYNDROME
     Dosage: 60 MG, LOADING DOSE
     Dates: start: 20100422, end: 20101002
  6. ASACOL [Concomitant]
  7. CALCIUM [Concomitant]
  8. ENALAPRIL MALEATE [Concomitant]
  9. NITROGLYCERIN [Concomitant]
     Dosage: UNK, PRN
  10. ASPIRIN [Concomitant]
     Dosage: 100 MG, QD
  11. AMLODIPINE BESYLATE [Concomitant]
  12. SIMVASTATIN [Concomitant]
  13. PULMICORT [Concomitant]
  14. PRASUGREL HYDROCHLORIDE [Suspect]
     Dosage: 5 MG, QD
  15. ALENDRONATE SODIUM [Concomitant]

REACTIONS (5)
  - COLITIS ULCERATIVE [None]
  - ANGINA PECTORIS [None]
  - ANAEMIA [None]
  - ASTHMA [None]
  - CROHN'S DISEASE [None]
